FAERS Safety Report 7538863-3 (Version None)
Quarter: 2011Q2

REPORT INFORMATION
  Report Type: 
  Country: None (occurrence: None)
  Receive Date: 20110524
  Receipt Date: 20110414
  Transmission Date: 20111010
  Serious: No
  Sender: FDA-Public Use
  Company Number: 031175

PATIENT
  Sex: Female
  Weight: 70.3 kg

DRUGS (5)
  1. FOLIC ACID [Concomitant]
  2. HYDROXYCHLOROQUINE SULFATE [Concomitant]
  3. METHOTREXATE [Concomitant]
  4. PROZAC [Concomitant]
  5. CIMZIA [Suspect]
     Indication: RHEUMATOID ARTHRITIS
     Dosage: (400 MG 1X/2 WEEKS, EVERY OTHER WEEK FOR 6 WEEKS SUBCUTANEOUS)
     Route: 058
     Dates: start: 20110301

REACTIONS (1)
  - RHEUMATOID ARTHRITIS [None]
